FAERS Safety Report 11215657 (Version 1)
Quarter: 2015Q2

REPORT INFORMATION
  Report Type: Spontaneous
  Country: US (occurrence: US)
  Receive Date: 20150624
  Receipt Date: 20150624
  Transmission Date: 20150821
  Serious: Yes (Other)
  Sender: FDA-Public Use
  Company Number: US-PFIZER INC-2015207014

PATIENT
  Age: 69 Year
  Sex: Female
  Weight: 32 kg

DRUGS (9)
  1. LYRICA [Suspect]
     Active Substance: PREGABALIN
     Indication: NEURALGIA
  2. OXYCODONE [Concomitant]
     Active Substance: OXYCODONE
     Dosage: EVERY 6 HOURS WHEN NEEDED
  3. NEFAZODONE [Concomitant]
     Active Substance: NEFAZODONE
     Dosage: ONCE A DAY AT NIGHT
  4. LYRICA [Suspect]
     Active Substance: PREGABALIN
     Indication: RHEUMATOID ARTHRITIS
     Dosage: 150 MG, 3X/DAY (EVERY 8 HOURS)
     Dates: start: 2003
  5. FOLIC ACID. [Concomitant]
     Active Substance: FOLIC ACID
     Dosage: UNK, 1X/DAY
  6. LYRICA [Suspect]
     Active Substance: PREGABALIN
     Indication: FIBROMYALGIA
  7. METHOTREXATE [Concomitant]
     Active Substance: METHOTREXATE
     Dosage: THREE METHOTREXATE ON WEDNESDAY
  8. MORPHINE SULFATE. [Concomitant]
     Active Substance: MORPHINE SULFATE
     Dosage: 30 MG, EVERY 8 HOURS
  9. VITAMIN D [Concomitant]
     Active Substance: CHOLECALCIFEROL
     Dosage: 50 ON SUNDAY ONCE A WEEK

REACTIONS (2)
  - Hip fracture [Unknown]
  - Fall [Unknown]
